FAERS Safety Report 25057762 (Version 1)
Quarter: 2025Q1

REPORT INFORMATION
  Report Type: Spontaneous
  Country: US (occurrence: None)
  Receive Date: 20250307
  Receipt Date: 20250307
  Transmission Date: 20250409
  Serious: No
  Sender: FDA-CTU
  Company Number: None

PATIENT
  Age: 89 Year
  Sex: Male

DRUGS (1)
  1. ADEMPAS [Suspect]
     Active Substance: RIOCIGUAT
     Indication: Pulmonary hypertension
     Dosage: 2.5MG TID ORAL ?
     Route: 048
     Dates: start: 20231227

REACTIONS (2)
  - Pneumonitis [None]
  - Atelectasis [None]

NARRATIVE: CASE EVENT DATE: 20250122
